FAERS Safety Report 12449425 (Version 1)
Quarter: 2016Q2

REPORT INFORMATION
  Report Type: Spontaneous
  Country: JP (occurrence: JP)
  Receive Date: 20160608
  Receipt Date: 20160608
  Transmission Date: 20160815
  Serious: Yes (Hospitalization, Other)
  Sender: FDA-Public Use
  Company Number: PHJP2014JP000913

PATIENT
  Age: 15 Year
  Sex: Male
  Weight: 66.2 kg

DRUGS (1)
  1. TEGRETOL [Suspect]
     Active Substance: CARBAMAZEPINE
     Indication: TEMPORAL LOBE EPILEPSY
     Dosage: 1 DF, BID
     Route: 048
     Dates: start: 20140502, end: 20140602

REACTIONS (14)
  - Drug eruption [Recovering/Resolving]
  - Splenomegaly [Unknown]
  - Rash [Recovering/Resolving]
  - Pyrexia [Recovering/Resolving]
  - Conjunctival hyperaemia [Recovering/Resolving]
  - Oral mucosal erythema [Recovering/Resolving]
  - C-reactive protein increased [Recovering/Resolving]
  - Erythema of eyelid [Recovered/Resolved]
  - Erythema multiforme [Unknown]
  - Lymphadenopathy [Unknown]
  - Skin erosion [Unknown]
  - Mouth haemorrhage [Recovering/Resolving]
  - Hepatic steatosis [Unknown]
  - Transaminases increased [Recovering/Resolving]

NARRATIVE: CASE EVENT DATE: 20140523
